FAERS Safety Report 19360849 (Version 1)
Quarter: 2021Q2

REPORT INFORMATION
  Report Type: Report from Study
  Country: None (occurrence: US)
  Receive Date: 20210602
  Receipt Date: 20210602
  Transmission Date: 20210717
  Serious: No
  Sender: FDA-Public Use
  Company Number: US-MDD US OPERATIONS-MDD202011-002252

PATIENT
  Age: 68 Year
  Sex: Female
  Weight: 56 kg

DRUGS (4)
  1. AZILECT [Concomitant]
     Active Substance: RASAGILINE MESYLATE
     Dosage: NOT PROVIDED
  2. APOKYN [Suspect]
     Active Substance: APOMORPHINE HYDROCHLORIDE
     Indication: PARKINSON^S DISEASE
     Route: 058
     Dates: start: 20201111
  3. CETRAZINE [Concomitant]
     Dosage: NOT PROVIDED
  4. SINEMET [Concomitant]
     Active Substance: CARBIDOPA\LEVODOPA
     Dosage: 25/100

REACTIONS (4)
  - Asthenia [Recovered/Resolved]
  - Nausea [Recovered/Resolved]
  - Nasal congestion [Recovered/Resolved]
  - Rhinorrhoea [Recovered/Resolved]

NARRATIVE: CASE EVENT DATE: 20201111
